FAERS Safety Report 18554016 (Version 1)
Quarter: 2020Q4

REPORT INFORMATION
  Report Type: Spontaneous
  Country: GB (occurrence: GB)
  Receive Date: 20201127
  Receipt Date: 20201127
  Transmission Date: 20210114
  Serious: Yes (Life-Threatening, Hospitalization, Other)
  Sender: FDA-Public Use
  Company Number: GB-009507513-2011GBR010811

PATIENT
  Age: 61 Year
  Sex: Female
  Weight: 79.82 kg

DRUGS (6)
  1. CYCLOGEST [Concomitant]
     Active Substance: PROGESTERONE
     Dosage: 200 MILLIGRAM
  2. HYDROXOCOBALAMIN [Concomitant]
     Active Substance: HYDROXOCOBALAMIN
     Dosage: 1MG/1ML SOLUTION; 1 DOSE/10 WEEKS
  3. VITAMIN B COMPLEX [Concomitant]
     Active Substance: CYANOCOBALAMIN\DEXPANTHENOL\NIACINAMIDE\PYRIDOXINE HYDROCHLORIDE\RIBOFLAVIN 5^-PHOSPHATE SODIUM\THIAMINE HYDROCHLORIDE\VITAMIN B COMPLEX
     Dosage: UNK
  4. EVOREL [Concomitant]
     Dosage: 50 MILLIGRAM, 1/WEEK
  5. LISINOPRIL. [Suspect]
     Active Substance: LISINOPRIL
     Indication: HYPERTENSION
     Dosage: 5 MILLIGRAM, 1/DAY
     Route: 048
     Dates: start: 20130901, end: 20151227
  6. ATENOLOL. [Concomitant]
     Active Substance: ATENOLOL
     Indication: HYPERTENSION
     Dosage: 25 MILLIGRAM

REACTIONS (9)
  - Malaise [Unknown]
  - Swollen tongue [Recovered/Resolved with Sequelae]
  - Hypersensitivity [Unknown]
  - Tongue dry [Recovered/Resolved with Sequelae]
  - Pharyngeal swelling [Unknown]
  - Lethargy [Recovered/Resolved]
  - Dyspnoea [Recovered/Resolved]
  - Somnolence [Recovered/Resolved]
  - Taste disorder [Recovered/Resolved]

NARRATIVE: CASE EVENT DATE: 20151114
